FAERS Safety Report 15258456 (Version 1)
Quarter: 2018Q3

REPORT INFORMATION
  Report Type: Report from Study
  Country: None (occurrence: ES)
  Receive Date: 20180809
  Receipt Date: 20180809
  Transmission Date: 20181010
  Serious: Yes (Death, Hospitalization)
  Sender: FDA-Public Use
  Company Number: ES-ABBVIE-18S-144-2446161-00

PATIENT
  Age: 63 Year
  Sex: Female
  Weight: 53 kg

DRUGS (1)
  1. DUODOPA [Suspect]
     Active Substance: CARBIDOPA\LEVODOPA
     Indication: MULTIPLE SYSTEM ATROPHY
     Route: 050
     Dates: start: 20180612

REACTIONS (4)
  - Urinary tract infection [Fatal]
  - Sepsis [Fatal]
  - Pneumonia [Fatal]
  - Pyrexia [Unknown]

NARRATIVE: CASE EVENT DATE: 201808
